FAERS Safety Report 10306347 (Version 4)
Quarter: 2014Q3

REPORT INFORMATION
  Report Type: Spontaneous
  Country: JP (occurrence: JP)
  Receive Date: 20140715
  Receipt Date: 20140821
  Transmission Date: 20150326
  Serious: Yes (Hospitalization)
  Sender: FDA-Public Use
  Company Number: JP-BAYER-2014-105142

PATIENT
  Age: 78 Year
  Sex: Female
  Weight: 44.9 kg

DRUGS (3)
  1. BAYASPIRIN [Suspect]
     Active Substance: ASPIRIN
     Indication: CAROTID ARTERY STENOSIS
     Dosage: DAILY DOSE 100 MG
     Route: 048
     Dates: start: 201211, end: 20130726
  2. BAYASPIRIN [Suspect]
     Active Substance: ASPIRIN
     Indication: CAROTID ARTERY STENOSIS
     Dosage: 100 MG, DAILY
     Route: 048
     Dates: start: 20130806
  3. BONOTEO [Concomitant]
     Active Substance: MINODRONIC ACID
     Dosage: DAILY DOSE 50 MG
     Route: 048

REACTIONS (1)
  - Colitis ischaemic [Recovered/Resolved]

NARRATIVE: CASE EVENT DATE: 20130726
